FAERS Safety Report 5732449-9 (Version None)
Quarter: 2008Q2

REPORT INFORMATION
  Report Type: 
  Country: None (occurrence: None)
  Receive Date: 20080507
  Receipt Date: 20080422
  Transmission Date: 20081010
  Serious: Yes (Hospitalization, Other)
  Sender: FDA-Public Use
  Company Number: ENT 2008-0058

PATIENT
  Age: 76 Year
  Sex: Female

DRUGS (4)
  1. COMTAN [Suspect]
     Indication: DRUG EFFECT DECREASED
     Dosage: 300 MG, ORAL; 100 MG, ORAL
     Route: 048
     Dates: start: 20070401
  2. LEVODOPA [Concomitant]
  3. PRAMIPEXOLE DIHYDROCHLORIDE [Concomitant]
  4. DONEPEZIL HCL [Concomitant]

REACTIONS (13)
  - AKINESIA [None]
  - ANAEMIA [None]
  - CONDITION AGGRAVATED [None]
  - CONSTIPATION [None]
  - DIARRHOEA [None]
  - GAIT DISTURBANCE [None]
  - HALLUCINATION [None]
  - HYPOKALAEMIA [None]
  - MALAISE [None]
  - OEDEMA PERIPHERAL [None]
  - ORAL INTAKE REDUCED [None]
  - PARKINSON'S DISEASE [None]
  - WEIGHT DECREASED [None]
